FAERS Safety Report 14720933 (Version 1)
Quarter: 2018Q2

REPORT INFORMATION
  Report Type: Spontaneous
  Country: JP (occurrence: JP)
  Receive Date: 20180405
  Receipt Date: 20180405
  Transmission Date: 20180711
  Serious: Yes (Death, Other)
  Sender: FDA-Public Use
  Company Number: JP-SA-2018SA095337

PATIENT
  Sex: Female

DRUGS (29)
  1. LEVOCETIRIZINE [Suspect]
     Active Substance: LEVOCETIRIZINE
     Indication: PRODUCT USED FOR UNKNOWN INDICATION
     Dosage: 5
     Route: 048
  2. VOGLIBOSE/MITIGLINIDE CALCIUM [Concomitant]
  3. TOCOPHEROL [Concomitant]
     Active Substance: TOCOPHEROL
  4. VILANTEROL TRIFENATATE [Suspect]
     Active Substance: VILANTEROL TRIFENATATE
     Dosage: 200
     Route: 065
  5. ISOSORBIDE DINITRATE. [Concomitant]
     Active Substance: ISOSORBIDE DINITRATE
  6. PRANLUKAST [Concomitant]
     Active Substance: PRANLUKAST
  7. BROTIZOLAM [Concomitant]
     Active Substance: BROTIZOLAM
  8. CLARITHROMYCIN. [Concomitant]
     Active Substance: CLARITHROMYCIN
  9. SOLIFENACIN [Concomitant]
     Active Substance: SOLIFENACIN
  10. NICORANDIL [Concomitant]
     Active Substance: NICORANDIL
  11. SITAGLIPTIN PHOSPHATE [Concomitant]
     Active Substance: SITAGLIPTIN PHOSPHATE
  12. ESOMEPRAZOLE MAGNESIUM. [Concomitant]
     Active Substance: ESOMEPRAZOLE MAGNESIUM
  13. AMBROXOL HYDROCHLORIDE [Concomitant]
     Active Substance: AMBROXOL HYDROCHLORIDE
     Route: 065
  14. BETAMETHASONE. [Concomitant]
     Active Substance: BETAMETHASONE
  15. FUROSEMIDE. [Concomitant]
     Active Substance: FUROSEMIDE
  16. PREDNISOLONE. [Concomitant]
     Active Substance: PREDNISOLONE
  17. SPIRONOLACTONE. [Concomitant]
     Active Substance: SPIRONOLACTONE
  18. MEPOLIZUMAB [Suspect]
     Active Substance: MEPOLIZUMAB
     Indication: ASTHMA
     Route: 058
  19. ESOMEPRAZOLE [Concomitant]
     Active Substance: ESOMEPRAZOLE
  20. THEOPHYLLINE [Concomitant]
     Active Substance: THEOPHYLLINE ANHYDROUS
  21. BENIDIPINE HYDROCHLORIDE [Concomitant]
     Active Substance: BENIDIPINE HYDROCHLORIDE
  22. FLUTICASONE FUROATE [Suspect]
     Active Substance: FLUTICASONE FUROATE
     Route: 065
  23. ALENDRONIC ACID [Concomitant]
     Active Substance: ALENDRONIC ACID
     Route: 065
  24. MOSAPRIDE CITRATE [Concomitant]
     Active Substance: MOSAPRIDE CITRATE
  25. VITAMIN E [Concomitant]
     Active Substance: .ALPHA.-TOCOPHEROL
  26. CEFAZOLIN SODIUM. [Concomitant]
     Active Substance: CEFAZOLIN SODIUM
  27. IMMUNOGLOBULIN HUMAN NORMAL [Concomitant]
     Active Substance: HUMAN IMMUNOGLOBULIN G
  28. VOGLIBOSE [Concomitant]
     Active Substance: VOGLIBOSE
  29. TIARAMIDE HYDROCHLORIDE [Concomitant]
     Active Substance: TIARAMIDE HYDROCHLORIDE

REACTIONS (12)
  - Pyrexia [Fatal]
  - Pulmonary alveolar haemorrhage [Fatal]
  - Interstitial lung disease [Fatal]
  - Dyspnoea [Fatal]
  - Respiratory failure [Fatal]
  - Cellulitis [Fatal]
  - Hypoaesthesia [Fatal]
  - Haemoptysis [Fatal]
  - Bacteraemia [Fatal]
  - Asthma [Fatal]
  - Cardiac failure [Fatal]
  - Weight increased [Fatal]
